FAERS Safety Report 9679177 (Version 2)
Quarter: 2013Q4

REPORT INFORMATION
  Report Type: Spontaneous
  Country: US (occurrence: US)
  Receive Date: 20131108
  Receipt Date: 20131108
  Transmission Date: 20140711
  Serious: Yes (Hospitalization)
  Sender: FDA-Public Use
  Company Number: US-BAXTER-2013BAX042413

PATIENT
  Age: 60 Year
  Sex: Male

DRUGS (2)
  1. DIANEAL LOW CALCIUM [Suspect]
     Indication: RENAL FAILURE CHRONIC
     Route: 033
     Dates: start: 20101213
  2. DIANEAL LOW CALCIUM [Suspect]
     Route: 033
     Dates: start: 20130807

REACTIONS (2)
  - Arrhythmia [Recovered/Resolved]
  - Disease recurrence [Recovered/Resolved]
